FAERS Safety Report 5735497-8 (Version None)
Quarter: 2008Q2

REPORT INFORMATION
  Report Type: 
  Country: None (occurrence: None)
  Receive Date: 20080512
  Receipt Date: 20080430
  Transmission Date: 20081010
  Serious: Yes (Hospitalization)
  Sender: FDA-Public Use
  Company Number: FR-PFIZER INC-2005173216

PATIENT
  Sex: Male
  Weight: 62 kg

DRUGS (7)
  1. SUTENT [Suspect]
     Indication: METASTATIC RENAL CELL CARCINOMA
     Route: 048
  2. SOLUPRED [Concomitant]
     Dosage: DAILY DOSE:20MG
     Route: 048
  3. VALPROIC ACID [Concomitant]
     Route: 048
  4. PANTOPRAZOLE SODIUM [Concomitant]
     Dosage: DAILY DOSE:40MG
     Route: 048
  5. ALLOPURINOL [Concomitant]
     Route: 048
  6. INSULIN [Concomitant]
     Route: 058
  7. FORLAX [Concomitant]
     Dosage: DAILY DOSE:4000
     Route: 048
     Dates: start: 20051212, end: 20051220

REACTIONS (4)
  - CONVULSION [None]
  - DEHYDRATION [None]
  - HYPOGLYCAEMIA [None]
  - STOMATITIS [None]
